FAERS Safety Report 9499762 (Version 1)
Quarter: 2013Q3

REPORT INFORMATION
  Report Type: Spontaneous
  Country: US (occurrence: US)
  Receive Date: 20130905
  Receipt Date: 20130905
  Transmission Date: 20140515
  Serious: No
  Sender: FDA-Public Use
  Company Number: US-JNJFOC-20130814559

PATIENT
  Sex: Female
  Weight: 79.38 kg

DRUGS (3)
  1. DURAGESIC [Suspect]
     Indication: PAIN
     Route: 062
     Dates: start: 2012, end: 2012
  2. DURAGESIC [Suspect]
     Indication: PAIN
     Dosage: TWO 25 UG/HR PATCHES
     Route: 062
     Dates: start: 2013
  3. DURAGESIC [Suspect]
     Indication: PAIN
     Route: 062
     Dates: start: 2013, end: 2013

REACTIONS (6)
  - Pain [Not Recovered/Not Resolved]
  - Product quality issue [Unknown]
  - Abdominal pain lower [Not Recovered/Not Resolved]
  - Drug dose omission [Not Recovered/Not Resolved]
  - Therapeutic response decreased [Recovered/Resolved]
  - Wrong technique in drug usage process [Unknown]
